FAERS Safety Report 7344692-6 (Version None)
Quarter: 2011Q1

REPORT INFORMATION
  Report Type: 
  Country: None (occurrence: None)
  Receive Date: 20110310
  Receipt Date: 20110301
  Transmission Date: 20110831
  Serious: Yes (Death)
  Sender: FDA-Public Use
  Company Number: ES-MERCK-1102ESP00035

PATIENT
  Age: 101 Year
  Sex: Female

DRUGS (2)
  1. INVANZ [Suspect]
     Indication: EVIDENCE BASED TREATMENT
     Route: 042
     Dates: start: 20100419, end: 20100421
  2. INVANZ [Suspect]
     Indication: CHOLECYSTITIS ACUTE
     Route: 042
     Dates: start: 20100419, end: 20100421

REACTIONS (1)
  - NO THERAPEUTIC RESPONSE [None]
